FAERS Safety Report 6347603-5 (Version None)
Quarter: 2009Q3

REPORT INFORMATION
  Report Type: 
  Country: None (occurrence: None)
  Receive Date: 20090910
  Receipt Date: 20090901
  Transmission Date: 20100115
  Serious: Yes (Death)
  Sender: FDA-Public Use
  Company Number: FR-BAXTER-2009BH013656

PATIENT
  Age: 67 Year
  Sex: Female
  Weight: 55 kg

DRUGS (7)
  1. GAMMAGARD LIQUID [Suspect]
     Indication: POLYNEUROPATHY
     Route: 042
     Dates: start: 20090720, end: 20090724
  2. GAMMAGARD LIQUID [Suspect]
     Indication: OFF LABEL USE
     Route: 042
     Dates: start: 20090720, end: 20090724
  3. VITAMIN B1 TAB [Concomitant]
  4. VITAMIN B6 [Concomitant]
  5. DOMPERIDONE [Concomitant]
  6. LACTULOSE [Concomitant]
  7. TRAMADOL HCL [Concomitant]

REACTIONS (2)
  - CARDIAC ARREST [None]
  - HALLUCINATION [None]
